FAERS Safety Report 24333592 (Version 1)
Quarter: 2024Q3

REPORT INFORMATION
  Report Type: Spontaneous
  Country: US (occurrence: US)
  Receive Date: 20240918
  Receipt Date: 20240918
  Transmission Date: 20241016
  Serious: Yes (Other)
  Sender: DR REDDYS
  Company Number: US-DRL-USA-SPO/USA/24/0013520

PATIENT
  Age: 53 Year
  Sex: Male

DRUGS (8)
  1. PREGABALIN [Suspect]
     Active Substance: PREGABALIN
     Indication: Occipital neuralgia
  2. NORTRIPTYLINE [Suspect]
     Active Substance: NORTRIPTYLINE
     Indication: Occipital neuralgia
  3. UBROGEPANT [Concomitant]
     Active Substance: UBROGEPANT
     Indication: Occipital neuralgia
  4. PREDNISONE [Concomitant]
     Active Substance: PREDNISONE
     Indication: Occipital neuralgia
  5. PHENYTOIN [Concomitant]
     Active Substance: PHENYTOIN
     Indication: Occipital neuralgia
  6. GABAPENTIN [Concomitant]
     Active Substance: GABAPENTIN
     Indication: Occipital neuralgia
  7. DULOXETINE [Concomitant]
     Active Substance: DULOXETINE
     Indication: Occipital neuralgia
  8. CARBAMAZEPINE [Concomitant]
     Active Substance: CARBAMAZEPINE
     Indication: Occipital neuralgia

REACTIONS (1)
  - Drug ineffective for unapproved indication [Unknown]
